FAERS Safety Report 4645070-0 (Version None)
Quarter: 2005Q2

REPORT INFORMATION
  Report Type: 
  Country: None (occurrence: None)
  Receive Date: 20050422
  Receipt Date: 20050411
  Transmission Date: 20051028
  Serious: Yes (Death)
  Sender: FDA-Public Use
  Company Number: 2005-04-1165

PATIENT
  Sex: Male

DRUGS (7)
  1. SALBUTAMOL (ALBUTEROL) ORAL AEROSOL [Suspect]
     Dosage: ORAL AER INH
     Route: 048
  2. ATROVENT [Suspect]
     Dosage: ORAL AER INH
     Route: 048
  3. SEREVENT [Suspect]
  4. CARBAMAZEPINE [Suspect]
     Dosage: 200 MG BID
  5. CARBOCISTEINE [Suspect]
  6. FRUSENE [Suspect]
     Dosage: 40 MG QD
  7. OXYGEN [Suspect]
     Dosage: UNKNOWN INHALATION
     Route: 055

REACTIONS (2)
  - CHRONIC OBSTRUCTIVE PULMONARY DISEASE [None]
  - PNEUMONIA [None]
